FAERS Safety Report 9254153 (Version 1)
Quarter: 2013Q2

REPORT INFORMATION
  Report Type: Report from Study
  Country: CA (occurrence: CA)
  Receive Date: 20130425
  Receipt Date: 20130425
  Transmission Date: 20140414
  Serious: Yes (Other)
  Sender: FDA-Public Use
  Company Number: CA-JNJFOC-20130411248

PATIENT
  Age: 31 Year
  Sex: Female
  Weight: 118 kg

DRUGS (6)
  1. REMICADE [Suspect]
     Indication: PSORIATIC ARTHROPATHY
     Route: 042
     Dates: start: 20101109
  2. GLUMETZA [Concomitant]
     Route: 065
  3. HUMULIN N [Concomitant]
     Route: 065
  4. METHOTREXATE [Concomitant]
     Route: 065
  5. HYDROCHLOROTHIAZIDE [Concomitant]
     Route: 065
  6. TECTA [Concomitant]
     Route: 065

REACTIONS (2)
  - Urinary tract infection [Recovering/Resolving]
  - Blood glucose increased [Recovering/Resolving]
